FAERS Safety Report 5951517-X (Version None)
Quarter: 2008Q4

REPORT INFORMATION
  Report Type: 
  Country: None (occurrence: None)
  Receive Date: 20081113
  Receipt Date: 20081103
  Transmission Date: 20090506
  Serious: Yes (Death)
  Sender: FDA-Public Use
  Company Number: HR-AVENTIS-200816017EU

PATIENT
  Age: 73 Year
  Sex: Female

DRUGS (6)
  1. FUROSEMIDE [Suspect]
     Indication: HYPERTENSION
  2. FUROSEMIDE [Suspect]
  3. CEFUROXIME AXETIL [Suspect]
     Indication: URINARY TRACT INFECTION
  4. LISINOPRIL [Concomitant]
  5. LISINOPRIL [Concomitant]
     Indication: HYPERTENSION
  6. CALCIUM CARBONATE [Concomitant]

REACTIONS (9)
  - DRUG INTERACTION [None]
  - DRUG LEVEL INCREASED [None]
  - GRANULOCYTOPENIA [None]
  - ISCHAEMIC HEPATITIS [None]
  - LEUKOPENIA [None]
  - MULTI-ORGAN FAILURE [None]
  - OESOPHAGITIS HAEMORRHAGIC [None]
  - STAPHYLOCOCCAL SEPSIS [None]
  - TOXIC EPIDERMAL NECROLYSIS [None]
